FAERS Safety Report 11898686 (Version 1)
Quarter: 2016Q1

REPORT INFORMATION
  Report Type: Spontaneous
  Country: US (occurrence: US)
  Receive Date: 20160108
  Receipt Date: 20160108
  Transmission Date: 20160526
  Serious: Yes (Death, Hospitalization, Other)
  Sender: FDA-Public Use
  Company Number: US-GLAXOSMITHKLINE-US2016GSK000814

PATIENT
  Age: 31 Year
  Sex: Female

DRUGS (4)
  1. BUPROPION. [Suspect]
     Active Substance: BUPROPION
     Dosage: UNK
     Route: 048
  2. LITHIUM. [Suspect]
     Active Substance: LITHIUM
     Dosage: UNK
     Route: 048
  3. METFORMIN [Suspect]
     Active Substance: METFORMIN HYDROCHLORIDE
     Dosage: UNK
     Route: 048
  4. BENZODIAZEPINE [Suspect]
     Active Substance: BENZODIAZEPINE
     Dosage: UNK
     Route: 048

REACTIONS (2)
  - Completed suicide [Fatal]
  - Cardio-respiratory arrest [Unknown]
